FAERS Safety Report 18880246 (Version 1)
Quarter: 2021Q1

REPORT INFORMATION
  Report Type: Spontaneous
  Country: US (occurrence: US)
  Receive Date: 20210211
  Receipt Date: 20210211
  Transmission Date: 20210420
  Serious: No
  Sender: FDA-Public Use
  Company Number: US-009507513-2102USA002776

PATIENT
  Sex: Male

DRUGS (6)
  1. PREDNISONE. [Interacting]
     Active Substance: PREDNISONE
     Indication: ANAPHYLACTIC REACTION
     Dosage: 40 MILLIGRAM, FOR 3 DAYS
  2. COVID?19 VACCINE NOS. [Interacting]
     Active Substance: COVID-19 VACCINE NOS
     Indication: COVID-19 IMMUNISATION
     Dosage: UNK
  3. SINGULAIR [Suspect]
     Active Substance: MONTELUKAST SODIUM
     Indication: ANAPHYLACTIC REACTION
     Dosage: UNK
     Route: 048
  4. COVID?19 VACCINE NOS. [Interacting]
     Active Substance: COVID-19 VACCINE NOS
     Dosage: UNK
     Dates: start: 20210125
  5. PEPCID [Interacting]
     Active Substance: FAMOTIDINE
     Indication: ANAPHYLACTIC REACTION
     Dosage: UNK
  6. ALLEGRA [Interacting]
     Active Substance: FEXOFENADINE HYDROCHLORIDE
     Indication: ANAPHYLACTIC REACTION

REACTIONS (3)
  - Product use in unapproved indication [Unknown]
  - Drug interaction [Not Recovered/Not Resolved]
  - Antibody test negative [Not Recovered/Not Resolved]
